FAERS Safety Report 5355734-1 (Version None)
Quarter: 2007Q2

REPORT INFORMATION
  Report Type: 
  Country: None (occurrence: None)
  Receive Date: 20070611
  Receipt Date: 20070611
  Transmission Date: 20071010
  Serious: Yes (Hospitalization)
  Sender: FDA-Public Use
  Company Number: None

PATIENT
  Age: 69 Year
  Sex: Female
  Weight: 54.6 kg

DRUGS (7)
  1. SIMVASTATIN [Suspect]
     Indication: DYSLIPIDAEMIA
     Dosage: ONE TABLET GIVEN ONE TIME PO
     Route: 048
     Dates: start: 20070601, end: 20070601
  2. METFORMIN HCL [Concomitant]
  3. ACTOS [Concomitant]
  4. COUMADIN [Concomitant]
  5. LOW DOSE ASPIRIN [Concomitant]
  6. METOPROLOL SUCCINATE [Concomitant]
  7. LASIX [Concomitant]

REACTIONS (4)
  - ALANINE AMINOTRANSFERASE INCREASED [None]
  - ASPARTATE AMINOTRANSFERASE INCREASED [None]
  - HEPATOTOXICITY [None]
  - LIVER FUNCTION TEST ABNORMAL [None]
